FAERS Safety Report 24398627 (Version 1)
Quarter: 2024Q4

REPORT INFORMATION
  Report Type: Spontaneous
  Country: TH (occurrence: TH)
  Receive Date: 20241004
  Receipt Date: 20241004
  Transmission Date: 20250115
  Serious: Yes (Other)
  Sender: MERCK
  Company Number: TH-009507513-2410THA000809

PATIENT
  Sex: Female

DRUGS (17)
  1. KEYTRUDA [Suspect]
     Active Substance: PEMBROLIZUMAB
     Indication: Triple negative breast cancer
     Dosage: CYCLE 2, WEEK 1 (C2W1)
  2. KEYTRUDA [Suspect]
     Active Substance: PEMBROLIZUMAB
     Dosage: CYCLE 3, WEEK 1 (C3W1)
  3. KEYTRUDA [Suspect]
     Active Substance: PEMBROLIZUMAB
     Dosage: CYCLE 4 TO CYCLE 7 (C4-C7)
  4. KEYTRUDA [Suspect]
     Active Substance: PEMBROLIZUMAB
     Dosage: COMPLETE 17 CYCLES
  5. PACLITAXEL [Concomitant]
     Active Substance: PACLITAXEL
     Dosage: 80 MG/M2, CYCLE 1 WEEK 1 (C1W1)
  6. PACLITAXEL [Concomitant]
     Active Substance: PACLITAXEL
     Dosage: 80 MG/M2, CYCLE 1 WEEK 2 (C1W2)
  7. PACLITAXEL [Concomitant]
     Active Substance: PACLITAXEL
     Dosage: 80 MG/M2, CYCLE 1 WEEK 3 (C1W3)
  8. PACLITAXEL [Concomitant]
     Active Substance: PACLITAXEL
     Dosage: 80 MG/M2, CYCLE 2 WEEK 1 (C2W1)
  9. PACLITAXEL [Concomitant]
     Active Substance: PACLITAXEL
     Dosage: 80 MG/M2, CYCLE 2 WEEK 2 (C2W2)
  10. PACLITAXEL [Concomitant]
     Active Substance: PACLITAXEL
     Dosage: 80 MG/M2, CYCLE 3 WEEK 1 (C3W1)
  11. PACLITAXEL [Concomitant]
     Active Substance: PACLITAXEL
     Dosage: 80 MG/M2, CYCLE 3 WEEK 2 TO CYCLE3 WEEKS 3 (C3W2-C4W3)
  12. CARBOPLATIN [Concomitant]
     Active Substance: CARBOPLATIN
     Dosage: AREA UNDER THE CURVE (AUC) 5 CYCLE 1 WEEK 1 (C1W1)
  13. CARBOPLATIN [Concomitant]
     Active Substance: CARBOPLATIN
     Dosage: AUC 5 CYCLE 2 WEEK 1 (C2W1)
  14. CARBOPLATIN [Concomitant]
     Active Substance: CARBOPLATIN
     Dosage: AUC 1.5 CYCLE 3 WEEK 1 (C3W1)
  15. CARBOPLATIN [Concomitant]
     Active Substance: CARBOPLATIN
     Dosage: CYCLE 3 WEEK 2 TO CYCLE 4 WEEK 3 (C3W2-C4W3)
  16. DOXORUBICIN [Concomitant]
     Active Substance: DOXORUBICIN
     Dosage: CYCLE 4 TO CYCLE 7 (C4-C7)
  17. CYCLOPHOSPHAMIDE [Concomitant]
     Active Substance: CYCLOPHOSPHAMIDE
     Dosage: CYCLE 4 TO CYCLE 7 (C4-C7)

REACTIONS (5)
  - Radiation pneumonitis [Recovered/Resolved]
  - Immune-mediated lung disease [Recovered/Resolved]
  - Cough [Unknown]
  - Neutrophil count increased [Unknown]
  - Neutrophil count decreased [Unknown]
